FAERS Safety Report 6575254-6 (Version None)
Quarter: 2010Q1

REPORT INFORMATION
  Report Type: 
  Country: None (occurrence: None)
  Receive Date: 20100202
  Receipt Date: 20091202
  Transmission Date: 20100710
  Serious: Yes (Hospitalization)
  Sender: FDA-Public Use
  Company Number: 2010000496

PATIENT
  Age: 49 Year
  Sex: Female

DRUGS (1)
  1. ACTIQ [Suspect]
     Indication: CROHN'S DISEASE
     Dosage: BU
     Route: 002
     Dates: start: 20070101

REACTIONS (4)
  - INFLAMMATION [None]
  - PANCREATIC NEOPLASM [None]
  - PARENTERAL NUTRITION [None]
  - SPHINCTER OF ODDI DYSFUNCTION [None]
